FAERS Safety Report 7020345-9 (Version None)
Quarter: 2010Q3

REPORT INFORMATION
  Report Type: 
  Country: None (occurrence: None)
  Receive Date: 20100929
  Receipt Date: 20100920
  Transmission Date: 20110219
  Serious: Yes (Other)
  Sender: FDA-Public Use
  Company Number: ES-SANOFI-AVENTIS-2010SA056528

PATIENT
  Age: 42 Year
  Sex: Female

DRUGS (2)
  1. ARAVA [Suspect]
     Indication: RHEUMATOID ARTHRITIS
     Route: 048
     Dates: start: 20090301, end: 20100601
  2. ARAVA [Suspect]
     Route: 048
     Dates: start: 20100601

REACTIONS (3)
  - ANAEMIA [None]
  - BONE MARROW TOXICITY [None]
  - LEUKOPENIA [None]
